FAERS Safety Report 9083261 (Version 2)
Quarter: 2014Q1

REPORT INFORMATION
  Report Type: Report from Study
  Country: BD (occurrence: BD)
  Receive Date: 20130218
  Receipt Date: 20140312
  Transmission Date: 20141002
  Serious: Yes (Death, Hospitalization)
  Sender: FDA-Public Use
  Company Number: PHHY2013BD015348

PATIENT
  Age: 78 Year
  Sex: Male

DRUGS (2)
  1. ACLASTA [Suspect]
     Indication: OSTEOPOROSIS
     Dosage: 5 MG, IN 100 ML SOLUTION
     Route: 042
     Dates: start: 20110717
  2. ACLASTA [Suspect]
     Dosage: 5 MG, IN 100 ML SOLUTION
     Route: 042
     Dates: start: 20121112

REACTIONS (1)
  - Lung disorder [Fatal]
